FAERS Safety Report 18170869 (Version 1)
Quarter: 2020Q3

REPORT INFORMATION
  Report Type: Spontaneous
  Country: CA (occurrence: CA)
  Receive Date: 20200819
  Receipt Date: 20200819
  Transmission Date: 20201103
  Serious: Yes (Other)
  Sender: FDA-Public Use
  Company Number: CA-FRESENIUS KABI-FK202008411

PATIENT
  Age: 13 Year
  Sex: Female

DRUGS (2)
  1. PROPOFOL (MANUFACTURER UNKNOWN) [Suspect]
     Active Substance: PROPOFOL
     Indication: SEDATIVE THERAPY
     Route: 042
  2. LIDOCAINE. [Suspect]
     Active Substance: LIDOCAINE
     Indication: PRODUCT USED FOR UNKNOWN INDICATION
     Route: 042

REACTIONS (7)
  - Blood pressure decreased [Unknown]
  - Oxygen saturation decreased [Unknown]
  - Anaphylactic reaction [Unknown]
  - Oedema mouth [Unknown]
  - Rash maculo-papular [Unknown]
  - Bronchospasm [Unknown]
  - Wheezing [Unknown]
